FAERS Safety Report 9295851 (Version 1)
Quarter: 2013Q1

REPORT INFORMATION
  Report Type: Spontaneous
  Country: US (occurrence: None)
  Receive Date: 20130103
  Receipt Date: 20130103
  Transmission Date: 20140127
  Serious: Yes (Life-Threatening)
  Sender: FDA-Public Use
  Company Number: DSA_47626_2011

PATIENT
  Sex: Female

DRUGS (1)
  1. XENAZINE 25 MG (NOT SPECIFIED) [Suspect]
     Indication: HUNTINGTON^S DISEASE
     Dosage: EACH MORNING, 25 MG, EACH NOON, 25 MG EACH EVENING ORAL
     Route: 048
     Dates: start: 201009, end: 201109

REACTIONS (1)
  - Suicide attempt [None]
